FAERS Safety Report 6709123-5 (Version None)
Quarter: 2010Q2

REPORT INFORMATION
  Report Type: 
  Country: None (occurrence: None)
  Receive Date: 20100503
  Receipt Date: 20100503
  Transmission Date: 20101027
  Serious: Yes (Hospitalization)
  Sender: FDA-Public Use
  Company Number: None

PATIENT
  Age: 59 Year
  Sex: Male

DRUGS (2)
  1. GADOBENATE [Suspect]
     Dates: start: 20100318, end: 20100318
  2. LORAZEPAM [Suspect]
     Indication: ANXIETY
     Dosage: 6 MG ONCE PO
     Route: 048
     Dates: start: 20100318, end: 20100318

REACTIONS (9)
  - ANAPHYLACTIC REACTION [None]
  - BRADYCARDIA [None]
  - CARDIO-RESPIRATORY ARREST [None]
  - CONTRAST MEDIA REACTION [None]
  - FATIGUE [None]
  - HEADACHE [None]
  - HYPERHIDROSIS [None]
  - HYPOTENSION [None]
  - OVERDOSE [None]
